FAERS Safety Report 8770456 (Version 2)
Quarter: 2013Q4

REPORT INFORMATION
  Report Type: Spontaneous
  Country: NZ (occurrence: NZ)
  Receive Date: 20120906
  Receipt Date: 20131105
  Transmission Date: 20140711
  Serious: Yes (Disabling)
  Sender: FDA-Public Use
  Company Number: NZ-009507513-1209NZL000471

PATIENT
  Age: 78 Year
  Sex: Female

DRUGS (5)
  1. FOSAMAX PLUS [Suspect]
     Indication: PROPHYLAXIS
     Dosage: 70 MG, QW
     Route: 048
  2. METFORMIN [Concomitant]
     Indication: TYPE 2 DIABETES MELLITUS
     Dosage: 1.7 G, QD
     Route: 048
  3. ATORVASTATIN [Concomitant]
     Dosage: 40 MG, QD
     Route: 048
  4. LEVOTHYROXINE SODIUM [Concomitant]
     Dosage: 50 MICROGRAM, QD
     Route: 048
  5. FUROSEMIDE [Concomitant]
     Dosage: 40 MG, QD
     Route: 048

REACTIONS (1)
  - Osteonecrosis [Not Recovered/Not Resolved]
